FAERS Safety Report 25257457 (Version 1)
Quarter: 2025Q2

REPORT INFORMATION
  Report Type: Spontaneous
  Country: CN (occurrence: CN)
  Receive Date: 20250430
  Receipt Date: 20250430
  Transmission Date: 20250717
  Serious: Yes (Hospitalization, Other)
  Sender: BAXTER
  Company Number: None

PATIENT
  Age: 1 Year
  Sex: Female
  Weight: 9.8 kg

DRUGS (6)
  1. CYCLOPHOSPHAMIDE [Suspect]
     Active Substance: CYCLOPHOSPHAMIDE
     Indication: Neoplasm malignant
     Dosage: 0.43 G, QD, PUMP INJECTION, (4: 1) GLUCOSE AND SODIUM CHLORIDE INJECTION 250ML + CYCLOPHOSPHAMIDE FO
     Route: 041
     Dates: start: 20250315, end: 20250316
  2. DEXTROSE\SODIUM CHLORIDE [Suspect]
     Active Substance: DEXTROSE\SODIUM CHLORIDE
     Dosage: 250 ML, QD + CYCLOPHOSPHAMIDE FOR INJECTION 0.43G PUMP INJECTION
     Route: 065
     Dates: start: 20250315, end: 20250316
  3. SODIUM CHLORIDE [Suspect]
     Active Substance: SODIUM CHLORIDE
     Dosage: 30 ML, QD+ VINDESINE FOR INJECTION 1MG, PUMP INJECTION
     Route: 065
     Dates: start: 20250315, end: 20250315
  4. SODIUM CHLORIDE [Suspect]
     Active Substance: SODIUM CHLORIDE
     Dosage: 100 ML, QD+ EPIRUBICIN FOR INJECTION 10MG, PUMP INJECTION
     Route: 065
     Dates: start: 20250315, end: 20250316
  5. EPIRUBICIN [Suspect]
     Active Substance: EPIRUBICIN
     Indication: Neoplasm malignant
     Dosage: 10 MG, QD, PUMP INJECTION+0.9% SODIUM CHLORIDE INJECTION 100ML
     Route: 041
     Dates: start: 20250315, end: 20250316
  6. VINDESINE SULFATE [Suspect]
     Active Substance: VINDESINE SULFATE
     Indication: Neoplasm malignant
     Dosage: 1 MG, QD, PUMP INJECTION+ 0.9% SODIUM CHLORIDE INJECTION 30ML
     Route: 041
     Dates: start: 20250315, end: 20250315

REACTIONS (1)
  - Myelosuppression [Recovering/Resolving]

NARRATIVE: CASE EVENT DATE: 20250318
